FAERS Safety Report 20199268 (Version 1)
Quarter: 2021Q4

REPORT INFORMATION
  Report Type: Spontaneous
  Country: US (occurrence: None)
  Receive Date: 20211216
  Receipt Date: 20211216
  Transmission Date: 20220303
  Serious: Yes (Hospitalization)
  Sender: FDA-Public Use
  Company Number: None

PATIENT
  Age: 66 Year
  Sex: Male

DRUGS (4)
  1. CARVEDILOL [Suspect]
     Active Substance: CARVEDILOL
     Indication: Cardiac failure congestive
     Dosage: FREQUENCY : TWICE A DAY;?
     Route: 048
     Dates: start: 20210113
  2. CARVEDILOL [Suspect]
     Active Substance: CARVEDILOL
     Indication: Hypertension
  3. SPIRONOLACTONE [Suspect]
     Active Substance: SPIRONOLACTONE
     Indication: Cardiac failure congestive
     Dosage: FREQUENCY : DAILY;?
     Route: 048
     Dates: start: 20201216, end: 20211019
  4. SPIRONOLACTONE [Suspect]
     Active Substance: SPIRONOLACTONE
     Indication: Hypertension

REACTIONS (5)
  - Dizziness [None]
  - Hypotension [None]
  - Bradycardia [None]
  - Fall [None]
  - Loss of consciousness [None]

NARRATIVE: CASE EVENT DATE: 20211018
